FAERS Safety Report 23218052 (Version 2)
Quarter: 2023Q4

REPORT INFORMATION
  Report Type: Spontaneous
  Country: US (occurrence: US)
  Receive Date: 20231122
  Receipt Date: 20231206
  Transmission Date: 20240109
  Serious: No
  Sender: FDA-Public Use
  Company Number: US-Blueprint Medicines Corporation-SP-US-2023-001845

PATIENT
  Age: 81 Year
  Sex: Male

DRUGS (2)
  1. AYVAKIT [Suspect]
     Active Substance: AVAPRITINIB
     Indication: Advanced systemic mastocytosis
     Route: 065
  2. AYVAKIT [Suspect]
     Active Substance: AVAPRITINIB
     Route: 048
     Dates: start: 20230824

REACTIONS (4)
  - Platelet count decreased [Unknown]
  - Abdominal hernia [Not Recovered/Not Resolved]
  - Hernia pain [Not Recovered/Not Resolved]
  - Infection [Not Recovered/Not Resolved]
